FAERS Safety Report 7412824-7 (Version None)
Quarter: 2011Q2

REPORT INFORMATION
  Report Type: 
  Country: None (occurrence: None)
  Receive Date: 20110413
  Receipt Date: 20110408
  Transmission Date: 20111010
  Serious: Yes (Other)
  Sender: FDA-Public Use
  Company Number: B0711622A

PATIENT
  Age: 26 Year
  Sex: Female

DRUGS (1)
  1. LAMICTAL [Suspect]
     Indication: PSYCHIATRIC DECOMPENSATION
     Dosage: 125MG PER DAY
     Route: 048
     Dates: start: 20110312, end: 20110313

REACTIONS (3)
  - DRUG DISPENSING ERROR [None]
  - DRUG EXPOSURE DURING PREGNANCY [None]
  - DRUG NAME CONFUSION [None]
